FAERS Safety Report 4388108-0 (Version None)
Quarter: 2004Q2

REPORT INFORMATION
  Report Type: 
  Country: None (occurrence: None)
  Receive Date: 20040630
  Receipt Date: 20040630
  Transmission Date: 20050107
  Serious: Yes (Other)
  Sender: FDA-Public Use
  Company Number: None

PATIENT
  Age: 28 Year
  Sex: Female
  Weight: 68.0396 kg

DRUGS (3)
  1. PENICILLIN [Suspect]
     Dosage: IM
     Route: 030
     Dates: start: 20030201, end: 20030228
  2. MULTIVITAMIN [Concomitant]
  3. CALCIUM [Concomitant]

REACTIONS (1)
  - INJECTION SITE ATROPHY [None]
